FAERS Safety Report 11546502 (Version 2)
Quarter: 2017Q1

REPORT INFORMATION
  Report Type: Spontaneous
  Country: US (occurrence: US)
  Receive Date: 20150924
  Receipt Date: 20170118
  Transmission Date: 20170428
  Serious: Yes (Other)
  Sender: FDA-Public Use
  Company Number: US-ELI_LILLY_AND_COMPANY-US201509004853

PATIENT
  Sex: Female

DRUGS (2)
  1. CYMBALTA [Suspect]
     Active Substance: DULOXETINE HYDROCHLORIDE
     Dosage: 10 MG, QD
     Route: 048
     Dates: end: 20131027
  2. CYMBALTA [Suspect]
     Active Substance: DULOXETINE HYDROCHLORIDE
     Indication: PRODUCT USED FOR UNKNOWN INDICATION
     Dosage: 20 MG, QD
     Route: 048

REACTIONS (34)
  - Tardive dyskinesia [Unknown]
  - Muscle twitching [Unknown]
  - Hot flush [Unknown]
  - Feeling cold [Unknown]
  - Agitation [Unknown]
  - Hyperhidrosis [Unknown]
  - Nausea [Unknown]
  - Fatigue [Unknown]
  - Paraesthesia [Unknown]
  - Affect lability [Unknown]
  - Palpitations [Unknown]
  - Muscular weakness [Unknown]
  - Memory impairment [Unknown]
  - Vertigo [Unknown]
  - Diarrhoea [Unknown]
  - Headache [Unknown]
  - Withdrawal syndrome [Unknown]
  - Insomnia [Unknown]
  - Disturbance in attention [Unknown]
  - Aggression [Unknown]
  - Irritability [Unknown]
  - Dizziness [Unknown]
  - Pain [Unknown]
  - Confusional state [Unknown]
  - Influenza like illness [Unknown]
  - Tongue biting [Unknown]
  - Sleep disorder [Unknown]
  - Sensory disturbance [Unknown]
  - Ataxia [Unknown]
  - Migraine [Unknown]
  - Dyskinesia [Unknown]
  - Nightmare [Unknown]
  - Vomiting [Unknown]
  - Anxiety [Unknown]
